FAERS Safety Report 15427306 (Version 2)
Quarter: 2018Q4

REPORT INFORMATION
  Report Type: Report from Study
  Country: DO (occurrence: DO)
  Receive Date: 20180925
  Receipt Date: 20181003
  Transmission Date: 20190204
  Serious: Yes (Other)
  Sender: FDA-Public Use
  Company Number: PHHY2018DO102221

PATIENT
  Age: 44 Year
  Sex: Male

DRUGS (1)
  1. SCAPHO [Suspect]
     Active Substance: SECUKINUMAB
     Indication: ANKYLOSING SPONDYLITIS
     Route: 065

REACTIONS (5)
  - Uveitis [Unknown]
  - Headache [Unknown]
  - Vision blurred [Unknown]
  - Ankylosing spondylitis [Unknown]
  - Eye pain [Unknown]
